FAERS Safety Report 7465935-4 (Version None)
Quarter: 2011Q2

REPORT INFORMATION
  Report Type: 
  Country: None (occurrence: None)
  Receive Date: 20110509
  Receipt Date: 20100507
  Transmission Date: 20111010
  Serious: No
  Sender: FDA-Public Use
  Company Number: US-ALEXION-A201000530

PATIENT
  Sex: Female
  Weight: 56.236 kg

DRUGS (6)
  1. PROVERA [Suspect]
     Indication: MENORRHAGIA
     Dosage: UNK
     Dates: start: 20100423, end: 20100425
  2. XANAX [Concomitant]
     Indication: ANXIETY
     Dosage: UNK
     Route: 048
  3. FOLIC ACID [Concomitant]
     Indication: PAROXYSMAL NOCTURNAL HAEMOGLOBINURIA
     Dosage: 1 MG, QD
     Route: 048
  4. SOLIRIS [Suspect]
     Indication: PAROXYSMAL NOCTURNAL HAEMOGLOBINURIA
     Dosage: 600 MG, QWKX4
     Route: 042
     Dates: start: 20100326, end: 20100416
  5. SOLIRIS [Suspect]
     Dosage: 900 MG, UNK
     Route: 042
     Dates: start: 20100423
  6. VITAMIN B12                        /00056201/ [Concomitant]
     Dosage: 1000 UG, QMONTH
     Route: 051

REACTIONS (2)
  - HEADACHE [None]
  - SINUSITIS [None]
